FAERS Safety Report 5990340-7 (Version None)
Quarter: 2008Q4

REPORT INFORMATION
  Report Type: 
  Country: None (occurrence: None)
  Receive Date: 20081210
  Receipt Date: 20081126
  Transmission Date: 20090506
  Serious: Yes (Other)
  Sender: FDA-Public Use
  Company Number: 107#03#2008-05957

PATIENT
  Age: 25 Year
  Sex: Female

DRUGS (6)
  1. MIRTAZAPINE [Suspect]
     Route: 048
     Dates: end: 20080709
  2. SYMBICORT [Suspect]
     Indication: ASTHMA
     Dosage: 160/4.5 UG ONE OR TWO TIMES DAILY
     Dates: start: 20080430, end: 20080807
  3. ALCOHOL (ALCOHOL) [Suspect]
     Indication: DRUG USE FOR UNKNOWN INDICATION
  4. FEXOFENADINE HCL [Concomitant]
  5. ORLISTAT (ORLISTAT) [Concomitant]
  6. PAROXETINE HCL [Concomitant]

REACTIONS (1)
  - MULTIPLE DRUG OVERDOSE [None]
